FAERS Safety Report 25841529 (Version 1)
Quarter: 2025Q3

REPORT INFORMATION
  Report Type: Spontaneous
  Country: US (occurrence: None)
  Receive Date: 20250923
  Receipt Date: 20250923
  Transmission Date: 20251020
  Serious: Yes (Life-Threatening, Hospitalization)
  Sender: FDA-CTU
  Company Number: None

PATIENT
  Age: 42 Year
  Sex: Female
  Weight: 110.25 kg

DRUGS (1)
  1. RETATRUTIDE [Suspect]
     Active Substance: RETATRUTIDE
     Indication: Weight control
     Route: 058
     Dates: start: 20250909, end: 20250923

REACTIONS (7)
  - Vomiting [None]
  - Syncope [None]
  - Skin mass [None]
  - Product use in unapproved indication [None]
  - Product advertising issue [None]
  - Victim of crime [None]
  - Illicit prescription attainment [None]

NARRATIVE: CASE EVENT DATE: 20250909
